FAERS Safety Report 25826580 (Version 1)
Quarter: 2025Q3

REPORT INFORMATION
  Report Type: Spontaneous
  Country: US (occurrence: US)
  Receive Date: 20250920
  Receipt Date: 20250920
  Transmission Date: 20251021
  Serious: No
  Sender: ABBVIE
  Company Number: US-ABBVIE-6463503

PATIENT
  Sex: Female

DRUGS (1)
  1. SKYRIZI [Suspect]
     Active Substance: RISANKIZUMAB-RZAA
     Indication: Psoriasis
     Route: 058

REACTIONS (4)
  - Nausea [Unknown]
  - Psoriasis [Unknown]
  - Manufacturing product shipping issue [Unknown]
  - Onychomadesis [Unknown]

NARRATIVE: CASE EVENT DATE: 20250101
